FAERS Safety Report 5843586-2 (Version None)
Quarter: 2008Q3

REPORT INFORMATION
  Report Type: 
  Country: None (occurrence: None)
  Receive Date: 20080813
  Receipt Date: 20080521
  Transmission Date: 20090109
  Serious: No
  Sender: FDA-Public Use
  Company Number: A0729055A

PATIENT
  Age: 65 Year
  Sex: Male

DRUGS (4)
  1. COREG CR [Suspect]
     Indication: HYPERTENSION
     Dosage: 80MG PER DAY
     Route: 048
     Dates: start: 20080501
  2. BENICAR [Concomitant]
  3. LEVEMIR [Concomitant]
  4. METFORMIN HCL [Concomitant]

REACTIONS (2)
  - PHOTOSENSITIVITY REACTION [None]
  - SENSATION OF BLOOD FLOW [None]
